FAERS Safety Report 9728117 (Version 1)
Quarter: 2013Q4

REPORT INFORMATION
  Report Type: Spontaneous
  Country: DE (occurrence: None)
  Receive Date: 20131127
  Receipt Date: 20131127
  Transmission Date: 20140711
  Serious: Yes (Disabling, Other)
  Sender: FDA-Public Use
  Company Number: 2013/204

PATIENT
  Sex: Male

DRUGS (2)
  1. AMLODIPINE (NO PREF. NAME) 5 MG [Suspect]
     Indication: HYPERTENSION
  2. UNSPECIFIED ANTIHYPERTENSIVES [Concomitant]

REACTIONS (9)
  - Dystonia [None]
  - Respiratory disorder [None]
  - Akathisia [None]
  - Anxiety [None]
  - Torticollis [None]
  - Restlessness [None]
  - Respiratory disorder [None]
  - Muscle spasms [None]
  - Back pain [None]
